FAERS Safety Report 20100508 (Version 2)
Quarter: 2021Q4

REPORT INFORMATION
  Report Type: Spontaneous
  Country: TR (occurrence: TR)
  Receive Date: 20211123
  Receipt Date: 20211231
  Transmission Date: 20220303
  Serious: Yes (Death, Other)
  Sender: FDA-Public Use
  Company Number: TR-AMGEN-TURSP2021183144

PATIENT

DRUGS (77)
  1. FILGRASTIM [Suspect]
     Active Substance: FILGRASTIM
     Indication: Prophylaxis
     Dosage: 0.5 MICROGRAM/KILOGRAM DAY 1 TO 7
     Route: 058
  2. FILGRASTIM [Suspect]
     Active Substance: FILGRASTIM
     Dosage: 0.5 MICROGRAM/KILOGRAM DAY 07
     Route: 058
  3. FILGRASTIM [Suspect]
     Active Substance: FILGRASTIM
     Dosage: 0.5 MICROGRAM/KILOGRAM 11 DAYS
     Route: 058
  4. FILGRASTIM [Suspect]
     Active Substance: FILGRASTIM
     Dosage: 0.5 MICROGRAM/KILOGRAM 11 DAYS
     Route: 058
  5. FAVIPIRAVIR [Concomitant]
     Active Substance: FAVIPIRAVIR
     Indication: COVID-19
  6. TOCILIZUMAB [Concomitant]
     Active Substance: TOCILIZUMAB
     Indication: Oxygen saturation decreased
  7. ANAKINRA [Concomitant]
     Active Substance: ANAKINRA
     Indication: Oxygen saturation decreased
  8. DAUNORUBICIN [Concomitant]
     Active Substance: DAUNORUBICIN
     Dosage: 60 MILLIGRAM/SQ. METER DAY 1-3
     Route: 042
  9. DAUNORUBICIN [Concomitant]
     Active Substance: DAUNORUBICIN
     Dosage: 60 MILLIGRAM/SQ. METER DAY 1-2
     Route: 042
  10. DAUNORUBICIN [Concomitant]
     Active Substance: DAUNORUBICIN
     Dosage: 30 MILLIGRAM/SQ. METER ON DAY 8, 15, 22, 29
     Route: 042
  11. DAUNORUBICIN [Concomitant]
     Active Substance: DAUNORUBICIN
     Dosage: 30 MILLIGRAM/SQ. METER ON DAY5
     Route: 042
  12. IDARUBICIN [Concomitant]
     Active Substance: IDARUBICIN
     Dosage: 12 MILLIGRAM/SQ. METER DAY 1-3
     Route: 042
  13. IDARUBICIN [Concomitant]
     Active Substance: IDARUBICIN
     Dosage: 12 MILLIGRAM/SQ. METER DAY 1-2
     Route: 042
  14. IDARUBICIN [Concomitant]
     Active Substance: IDARUBICIN
     Dosage: 8 MILLIGRAM/SQ. METER DAY 4 TO 6
     Route: 042
  15. CYTARABINE [Concomitant]
     Active Substance: CYTARABINE
     Dosage: 100 MILLIGRAM/SQ. METER DAY 1 TO 7
     Route: 042
  16. CYTARABINE [Concomitant]
     Active Substance: CYTARABINE
     Dosage: 100 MILLIGRAM/SQ. METER DAY 1 TO 5
     Route: 042
  17. CYTARABINE [Concomitant]
     Active Substance: CYTARABINE
     Dosage: 3000 MILLIGRAM/SQ. METER, Q12H DAY 1, 3, AND 5
     Route: 042
  18. CYTARABINE [Concomitant]
     Active Substance: CYTARABINE
     Dosage: 2 GRAM PER SQUARE METRE DAY 4-6
     Route: 042
  19. CYTARABINE [Concomitant]
     Active Substance: CYTARABINE
     Dosage: 75 MILLIGRAM/SQ. METER ON DAY 3-6, 10-13, 17-20, 24-27
     Route: 058
  20. CYTARABINE [Concomitant]
     Active Substance: CYTARABINE
     Dosage: 75 MILLIGRAM/SQ. METER DAY 38-41, DAY 45-48
     Route: 058
  21. CYTARABINE [Concomitant]
     Active Substance: CYTARABINE
     Dosage: 30 MILLIGRAM ON DAY 1
     Route: 058
  22. CYTARABINE [Concomitant]
     Active Substance: CYTARABINE
     Dosage: 2000 MILLIGRAM/SQ. METER, BID ON DAY 5
     Route: 042
  23. CYTARABINE [Concomitant]
     Active Substance: CYTARABINE
     Dosage: 30 MILLIGRAM ON DAY 1
     Route: 058
  24. CYTARABINE [Concomitant]
     Active Substance: CYTARABINE
     Dosage: 2000 MILLIGRAM/SQ. METER, BID ON DAY 1 AND 2
     Route: 042
  25. CYTARABINE [Concomitant]
     Active Substance: CYTARABINE
     Dosage: 30 MILLIGRAM ON DAY 5
     Route: 042
  26. FLUDARABINE PHOSPHATE [Concomitant]
     Active Substance: FLUDARABINE PHOSPHATE
     Dosage: 30 MILLIGRAM/SQ. METER DAY 2-6
     Route: 042
  27. AZACITIDINE [Concomitant]
     Active Substance: AZACITIDINE
     Dosage: 75 MILLIGRAM/SQ. METER DAY 1 TO 7
     Route: 058
  28. VENETOCLAX [Concomitant]
     Active Substance: VENETOCLAX
     Dosage: 100 MILLIGRAM, QD FROM DAY 1-28
     Route: 048
  29. VENETOCLAX [Concomitant]
     Active Substance: VENETOCLAX
     Dosage: 400 MILLIGRAM, QD FROM DAY 1-28
     Route: 048
  30. PREDNISOLONE [Concomitant]
     Active Substance: PREDNISOLONE
     Dosage: 60 MILLIGRAM/SQ. METER  DAY 1 TO 28 DAYS
     Route: 048
  31. METHOTREXATE [Concomitant]
     Active Substance: METHOTREXATE
     Dosage: 12 MILLIGRAM ON DAY 1, 12, AND 33
  32. METHOTREXATE [Concomitant]
     Active Substance: METHOTREXATE
     Dosage: 12 MILLIGRAM ON DAY 10 AND 24
  33. METHOTREXATE [Concomitant]
     Active Substance: METHOTREXATE
     Dosage: 500 MILLIGRAM/SQ. METER ON DAY 8, 22, 36, AND 50
     Route: 042
  34. METHOTREXATE [Concomitant]
     Active Substance: METHOTREXATE
     Dosage: 4500 MILLIGRAM/SQ. METER ON DAY 8, 22, 36, AND 50
     Route: 042
  35. METHOTREXATE [Concomitant]
     Active Substance: METHOTREXATE
     Dosage: 12 MILLIGRAM ON DAY 8, 22, 36, AND 50
  36. METHOTREXATE [Concomitant]
     Active Substance: METHOTREXATE
     Dosage: 12 MILLIGRAM ON DAY 38, 45
  37. METHOTREXATE [Concomitant]
     Active Substance: METHOTREXATE
     Dosage: 500 MILLIGRAM/SQ. METER ON DAY 1
     Route: 042
  38. METHOTREXATE [Concomitant]
     Active Substance: METHOTREXATE
     Dosage: 4500 MILLIGRAM/SQ. METER ON DAY 1
     Route: 042
  39. METHOTREXATE [Concomitant]
     Active Substance: METHOTREXATE
     Dosage: 12 MILLIGRAM ON DAY 1
  40. METHOTREXATE [Concomitant]
     Active Substance: METHOTREXATE
     Dosage: 500 MILLIGRAM/SQ. METER ON DAY 1
     Route: 042
  41. METHOTREXATE [Concomitant]
     Active Substance: METHOTREXATE
     Dosage: 4500 MILLIGRAM/SQ. METER ON DAY 1
     Route: 042
  42. METHOTREXATE [Concomitant]
     Active Substance: METHOTREXATE
     Dosage: 12 MILLIGRAM ON DAY 1
  43. METHOTREXATE [Concomitant]
     Active Substance: METHOTREXATE
     Dosage: 12 MILLIGRAM ON DAY 5
  44. METHOTREXATE [Concomitant]
     Active Substance: METHOTREXATE
     Dosage: 20 MILLIGRAM/SQ. METER, QWK
     Route: 048
  45. VINCRISTINE [Concomitant]
     Active Substance: VINCRISTINE
     Dosage: 2 MILLIGRAM ON DAY 8, 15, 22, 29
     Route: 042
  46. VINCRISTINE [Concomitant]
     Active Substance: VINCRISTINE
     Dosage: 2 MILLIGRAM ON DAY 8, 15, 22, 29
     Route: 042
  47. VINCRISTINE [Concomitant]
     Active Substance: VINCRISTINE
     Dosage: 2 MILLIGRAM ON DAY 1, 6
     Route: 042
  48. VINCRISTINE [Concomitant]
     Active Substance: VINCRISTINE
     Dosage: 2 MILLIGRAM ON DAY 1, 6
     Route: 042
  49. ASPARAGINASE [Concomitant]
     Active Substance: ASPARAGINASE
     Dosage: 500 IU/SQUARE METER ON DAY 12, 15, 18, 21, 24, 27, 30, 33
     Route: 042
  50. ASPARAGINASE [Concomitant]
     Active Substance: ASPARAGINASE
     Dosage: 500 IU/SQUARE METER ON DAY 08, 11, 15, AND 18
     Route: 042
  51. ASPARAGINASE [Concomitant]
     Active Substance: ASPARAGINASE
     Dosage: 25000 IU/SQUARE METER ON DAY 6 AND 11
     Route: 042
  52. ASPARAGINASE [Concomitant]
     Active Substance: ASPARAGINASE
     Dosage: 25000 IU/SQUARE METER ON DAY 6 AND 11
     Route: 042
  53. ASPARAGINASE [Concomitant]
     Active Substance: ASPARAGINASE
     Dosage: 25000 IU/SQUARE METER ON DAY 6 AND 11
     Route: 042
  54. CYCLOPHOSPHAMIDE [Concomitant]
     Active Substance: CYCLOPHOSPHAMIDE
     Dosage: 1000 MILLIGRAM/SQ. METER ON DAY 1, 29
     Route: 042
  55. CYCLOPHOSPHAMIDE [Concomitant]
     Active Substance: CYCLOPHOSPHAMIDE
     Dosage: 1000 MILLIGRAM/SQ. METER ON DAY 36
     Route: 042
  56. CYCLOPHOSPHAMIDE [Concomitant]
     Active Substance: CYCLOPHOSPHAMIDE
     Dosage: 200 MILLIGRAM/SQ. METER, Q12H 5 DOSES ON DAY 2-4
     Route: 042
  57. MESNA [Concomitant]
     Active Substance: MESNA
     Dosage: 400 MILLIGRAM/SQ. METER ON DAY1, 29
     Route: 042
  58. MESNA [Concomitant]
     Active Substance: MESNA
     Dosage: 400 MILLIGRAM/SQ. METER ON DAY 0,4, AND 8 HOURS POST EACH CYCLOPHOSPHAMIDE DOSE ON DAY 36
     Route: 042
  59. MESNA [Concomitant]
     Active Substance: MESNA
     Dosage: 70 MILLIGRAM/SQ. METER AT 0, 4, 8 HOURS POST EACH CYCLOPHOSPHAMIDE DOSE ON DAY 2-4
     Route: 042
  60. MESNA [Concomitant]
     Active Substance: MESNA
     Dosage: 300 MILLIGRAM/SQ. METER AT 0, 4, 8 HOURS POST EACH IFOSFAMIDE DOSE DAY 2-4
     Route: 042
  61. MERCAPTOPURINE [Concomitant]
     Active Substance: MERCAPTOPURINE
     Dosage: 60 MILLIGRAM/SQ. METER DAY 1-28
     Route: 048
  62. MERCAPTOPURINE [Concomitant]
     Active Substance: MERCAPTOPURINE
     Dosage: 25 MILLIGRAM/SQ. METER DAY 1-56
     Route: 048
  63. MERCAPTOPURINE [Concomitant]
     Active Substance: MERCAPTOPURINE
     Dosage: 50 MILLIGRAM/SQ. METER, QD
     Route: 048
  64. LEUCOVORIN CALCIUM [Concomitant]
     Active Substance: LEUCOVORIN CALCIUM
     Dosage: 15 MILLIGRAM/SQ. METER, Q6H ON DAY 9, 23, 37, AND 51
     Route: 042
  65. LEUCOVORIN CALCIUM [Concomitant]
     Active Substance: LEUCOVORIN CALCIUM
     Dosage: 15 MILLIGRAM/SQ. METER, Q6H ON DAY 2
     Route: 042
  66. LEUCOVORIN CALCIUM [Concomitant]
     Active Substance: LEUCOVORIN CALCIUM
     Dosage: 15 MILLIGRAM/SQ. METER, Q6H ON DAY 2
     Route: 042
  67. DEXAMETHASONE [Concomitant]
     Active Substance: DEXAMETHASONE
     Dosage: 10 MILLIGRAM/SQ. METER ON DAY 1-21
     Route: 048
  68. DEXAMETHASONE [Concomitant]
     Active Substance: DEXAMETHASONE
     Dosage: 10 MILLIGRAM/SQ. METER ON DAY 1-5
     Route: 048
  69. DEXAMETHASONE [Concomitant]
     Active Substance: DEXAMETHASONE
     Dosage: 10 MILLIGRAM/SQ. METER ON DAY 1-5
     Route: 048
  70. DEXAMETHASONE [Concomitant]
     Active Substance: DEXAMETHASONE
     Dosage: 20 MILLIGRAM/SQ. METER ON DAY 1-5
     Route: 048
  71. DOXORUBICIN [Concomitant]
     Active Substance: DOXORUBICIN
     Dosage: 30 MILLIGRAM/SQ. METER ON DAY 8, 15, 22, 29
     Route: 042
  72. THIOGUANINE [Concomitant]
     Active Substance: THIOGUANINE
     Dosage: 60 MILLIGRAM/SQ. METER DAY 36-49
     Route: 048
  73. HYDROCORTISONE [Concomitant]
     Active Substance: HYDROCORTISONE
     Dosage: 50 MILLIGRAM ON DAY 1
  74. HYDROCORTISONE [Concomitant]
     Active Substance: HYDROCORTISONE
     Dosage: 50 MILLIGRAM ON DAY 1
  75. HYDROCORTISONE [Concomitant]
     Active Substance: HYDROCORTISONE
     Dosage: 50 MILLIGRAM ON DAY 5
  76. IFOSFAMIDE [Concomitant]
     Active Substance: IFOSFAMIDE
     Dosage: 800 MILLIGRAM/SQ. METER, Q12H 5 DOSES DAY 2-4
     Route: 042
  77. ETOPOSIDE [Concomitant]
     Active Substance: ETOPOSIDE
     Dosage: 100 MILLIGRAM/SQ. METER, Q12H 5 DOSES ON DAY 3 TO 5
     Route: 042

REACTIONS (1)
  - Death [Fatal]
